FAERS Safety Report 24584019 (Version 1)
Quarter: 2024Q4

REPORT INFORMATION
  Report Type: Spontaneous
  Country: US (occurrence: US)
  Receive Date: 20241106
  Receipt Date: 20241106
  Transmission Date: 20250114
  Serious: Yes (Hospitalization, Other)
  Sender: HIKMA
  Company Number: US-HIKMA PHARMACEUTICALS USA INC.-US-H14001-24-10133

PATIENT
  Age: 36 Year
  Sex: Male

DRUGS (7)
  1. DEXAMETHASONE [Suspect]
     Active Substance: DEXAMETHASONE
     Indication: Myopericarditis
     Dosage: 10 MILLIGRAM, Q12H
     Route: 048
     Dates: start: 2023, end: 2023
  2. METHYLPREDNISOLONE [Suspect]
     Active Substance: METHYLPREDNISOLONE
     Indication: Myopericarditis
     Dosage: 60 MILLIGRAM, Q12H
     Route: 051
     Dates: start: 2023, end: 2023
  3. PREDNISOLONE [Suspect]
     Active Substance: PREDNISOLONE
     Indication: Myopericarditis
     Dosage: 60 MILLIGRAM, QD, HIGH DOSES
     Route: 048
     Dates: start: 2023, end: 2023
  4. PREDNISONE [Suspect]
     Active Substance: PREDNISONE
     Indication: Myopericarditis
     Dosage: 60 MILLIGRAM, QD
     Route: 048
     Dates: start: 2023, end: 2023
  5. PREDNISONE [Suspect]
     Active Substance: PREDNISONE
     Indication: Sinusitis
     Dosage: UNK
     Route: 065
     Dates: start: 2023, end: 2023
  6. AZITHROMYCIN [Concomitant]
     Active Substance: AZITHROMYCIN
     Indication: Sinusitis
     Dosage: UNK
     Route: 065
     Dates: start: 2023
  7. COLCHICINE [Concomitant]
     Active Substance: COLCHICINE
     Indication: Myopericarditis
     Dosage: 0.6 MILLIGRAM, QD
     Route: 065
     Dates: start: 2023

REACTIONS (2)
  - Substance-induced psychotic disorder [Recovering/Resolving]
  - Serum ferritin increased [Unknown]

NARRATIVE: CASE EVENT DATE: 20230101
